FAERS Safety Report 4334327-9 (Version None)
Quarter: 2004Q1

REPORT INFORMATION
  Report Type: 
  Country: None (occurrence: None)
  Receive Date: 20040329
  Receipt Date: 20031212
  Transmission Date: 20041129
  Serious: No
  Sender: FDA-Public Use
  Company Number: 03P-163-0244564-00

PATIENT
  Age: 63 Year
  Sex: Female
  Weight: 79.3795 kg

DRUGS (13)
  1. HUMIRA [Suspect]
     Indication: RHEUMATOID ARTHRITIS
     Dosage: 40 MG, 1 IN 2 WK, SUBCUTANEOUS
     Route: 058
     Dates: start: 20031001
  2. PREDNISONE [Concomitant]
  3. METHOTREXATE [Concomitant]
  4. FOLIC ACID [Concomitant]
  5. DICYCLOMINE HCL [Concomitant]
  6. ATORVASTATIN [Concomitant]
  7. LOTREL [Concomitant]
  8. CONJUGATED ESTROGEN [Concomitant]
  9. LANSOPRAZOLE [Concomitant]
  10. SERTRALINE HYDROCHLORIDE [Concomitant]
  11. POTASSIUM [Concomitant]
  12. ACETYLSALICYLIC ACID SRT [Concomitant]
  13. MULTIVITAMIN [Concomitant]

REACTIONS (1)
  - COUGH [None]
